FAERS Safety Report 5753524-9 (Version None)
Quarter: 2008Q2

REPORT INFORMATION
  Report Type: 
  Country: None (occurrence: None)
  Receive Date: 20080530
  Receipt Date: 20080522
  Transmission Date: 20081010
  Serious: Yes (Other)
  Sender: FDA-Public Use
  Company Number: US-ROCHE-566039

PATIENT
  Age: 60 Year
  Sex: Male

DRUGS (2)
  1. ROCEPHIN [Suspect]
     Indication: BRAIN ABSCESS
     Route: 065
     Dates: start: 20080318, end: 20080514
  2. FLAGYL [Concomitant]
     Dates: start: 20080318, end: 20080418

REACTIONS (3)
  - BILIARY COLIC [None]
  - CHOLELITHIASIS [None]
  - GALLBLADDER DISORDER [None]
